FAERS Safety Report 6075843-1 (Version None)
Quarter: 2009Q1

REPORT INFORMATION
  Report Type: 
  Country: None (occurrence: None)
  Receive Date: 20090212
  Receipt Date: 20090130
  Transmission Date: 20090719
  Serious: Yes (Other)
  Sender: FDA-Public Use
  Company Number: US-WYE-H07982509

PATIENT
  Sex: Female

DRUGS (1)
  1. PROTONIX [Suspect]
     Dosage: DECLINED BY CALLER
     Route: 048
     Dates: start: 20080201

REACTIONS (1)
  - BLOOD 25-HYDROXYCHOLECALCIFEROL DECREASED [None]
